FAERS Safety Report 18648673 (Version 1)
Quarter: 2020Q4

REPORT INFORMATION
  Report Type: Spontaneous
  Country: US (occurrence: US)
  Receive Date: 20201221
  Receipt Date: 20201221
  Transmission Date: 20210114
  Serious: No
  Sender: FDA-Public Use
  Company Number: None

PATIENT
  Age: 47 Year
  Sex: Female

DRUGS (1)
  1. RUXIENCE [Suspect]
     Active Substance: RITUXIMAB-PVVR
     Dosage: FREQUENCY: OTHER
     Route: 042
     Dates: start: 202012

REACTIONS (1)
  - Off label use [None]

NARRATIVE: CASE EVENT DATE: 20201221
